FAERS Safety Report 7197812-0 (Version None)
Quarter: 2010Q4

REPORT INFORMATION
  Report Type: 
  Country: None (occurrence: None)
  Receive Date: 20101227
  Receipt Date: 20101215
  Transmission Date: 20110411
  Serious: Yes (Hospitalization)
  Sender: FDA-Public Use
  Company Number: CH-ASTRAZENECA-2010SE59731

PATIENT
  Age: 65 Year
  Sex: Male

DRUGS (6)
  1. BELOC ZOK [Suspect]
     Route: 048
  2. BELOC ZOK [Interacting]
     Route: 048
  3. MULTAQ [Interacting]
     Route: 048
  4. ASPIRIN [Concomitant]
     Route: 048
  5. CRESTOR [Concomitant]
     Route: 048
  6. ZYLORIC [Concomitant]
     Route: 048

REACTIONS (3)
  - BRADYCARDIA [None]
  - DRUG INTERACTION [None]
  - SYNCOPE [None]
